FAERS Safety Report 12433956 (Version 1)
Quarter: 2016Q2

REPORT INFORMATION
  Report Type: Spontaneous
  Country: US (occurrence: US)
  Receive Date: 20160603
  Receipt Date: 20160603
  Transmission Date: 20160815
  Serious: No
  Sender: FDA-Public Use
  Company Number: US-DSJP-DSU-2015-121613

PATIENT
  Sex: Male
  Weight: 75.74 kg

DRUGS (2)
  1. BENICAR HCT [Suspect]
     Active Substance: HYDROCHLOROTHIAZIDE\OLMESARTAN MEDOXOMIL
     Indication: HYPERTENSION
     Dosage: 20/12.5 MG, UNK
     Dates: start: 2006, end: 2008
  2. BENICAR [Suspect]
     Active Substance: OLMESARTAN MEDOXOMIL
     Indication: PRODUCT USED FOR UNKNOWN INDICATION
     Dosage: UNK
     Dates: start: 2007

REACTIONS (8)
  - Gastroenteritis [Unknown]
  - Malabsorption [Unknown]
  - Constipation [Unknown]
  - Haemangioma of liver [Unknown]
  - Gastrooesophageal reflux disease [Not Recovered/Not Resolved]
  - Hepatic cyst [Unknown]
  - Dizziness [Unknown]
  - Proctalgia [Unknown]

NARRATIVE: CASE EVENT DATE: 2007
